FAERS Safety Report 5391998-6 (Version None)
Quarter: 2007Q3

REPORT INFORMATION
  Report Type: 
  Country: None (occurrence: None)
  Receive Date: 20070720
  Receipt Date: 20070713
  Transmission Date: 20080115
  Serious: Yes (Other)
  Sender: FDA-Public Use
  Company Number: GB-SP-2007-02509

PATIENT
  Age: 57 Year
  Sex: Male

DRUGS (5)
  1. IMMUCYST [Suspect]
     Route: 043
  2. IMMUCYST [Suspect]
     Route: 043
  3. SIMVASTATIN [Concomitant]
  4. ASPIRIN [Concomitant]
  5. METFORMIN HCL [Concomitant]

REACTIONS (2)
  - DEAFNESS UNILATERAL [None]
  - HYPOTHALAMO-PITUITARY DISORDER [None]
